FAERS Safety Report 17827105 (Version 2)
Quarter: 2020Q2

REPORT INFORMATION
  Report Type: Report from Study
  Country: None (occurrence: TW)
  Receive Date: 20200526
  Receipt Date: 20200617
  Transmission Date: 20200714
  Serious: Yes (Death, Hospitalization)
  Sender: FDA-Public Use
  Company Number: TW-ABBVIE-20K-153-3418372-00

PATIENT
  Age: 80 Year
  Sex: Female
  Weight: 70 kg

DRUGS (1)
  1. HUMIRA [Suspect]
     Active Substance: ADALIMUMAB
     Indication: RHEUMATOID ARTHRITIS
     Route: 058
     Dates: start: 20190527, end: 20200330

REACTIONS (4)
  - Hyperkalaemia [Fatal]
  - Loss of consciousness [Fatal]
  - Pneumonia [Fatal]
  - Toothache [Fatal]

NARRATIVE: CASE EVENT DATE: 202003
